FAERS Safety Report 25499376 (Version 5)
Quarter: 2025Q4

REPORT INFORMATION
  Report Type: Spontaneous
  Country: IN (occurrence: IN)
  Receive Date: 20250701
  Receipt Date: 20251016
  Transmission Date: 20260118
  Serious: Yes (Death, Hospitalization, Other)
  Sender: PFIZER
  Company Number: IN-PFIZER INC-PV202500078142

PATIENT
  Age: 41 Year
  Sex: Male

DRUGS (10)
  1. LORLATINIB [Suspect]
     Active Substance: LORLATINIB
     Indication: Non-small cell lung cancer metastatic
     Dosage: 100 MG, 1X/DAY
     Route: 048
     Dates: start: 2025, end: 20250914
  2. PAN [Concomitant]
     Dosage: 40 MG, 1X/DAY ON EMPTY STOMACH
  3. ONDANSETRON [Concomitant]
     Active Substance: ONDANSETRON
     Indication: Nausea
     Dosage: 4 MG, AS NEEDED FOR NAUSEA AND VOMITING
  4. ONDANSETRON [Concomitant]
     Active Substance: ONDANSETRON
     Indication: Vomiting
  5. LEVERA [LEVETIRACETAM] [Concomitant]
     Dosage: 750 MG, 2X/DAY
  6. LOBAZAM [Concomitant]
     Dosage: 5 MG, 2X/DAY
  7. OLANZAPINE [Concomitant]
     Active Substance: OLANZAPINE
     Dosage: 2.5 MG HALF TAB IN MORNING AND 1 TAB AT NIGHT
  8. CREMAFFIN PLUS [Concomitant]
     Dosage: 2 TSF AT NIGHT
  9. DEXAMETHASONE [Concomitant]
     Active Substance: DEXAMETHASONE
     Dosage: 4 MG, 1X/DAY
  10. DEXAMETHASONE [Concomitant]
     Active Substance: DEXAMETHASONE
     Dosage: 2 MG, 1X/DAY

REACTIONS (8)
  - Death [Fatal]
  - Somnolence [Unknown]
  - Non-small cell lung cancer metastatic [Unknown]
  - Malignant neoplasm progression [Unknown]
  - Metastases to pharynx [Unknown]
  - Metastases to lymph nodes [Unknown]
  - Cerebral atrophy [Unknown]
  - Cerebral ischaemia [Unknown]

NARRATIVE: CASE EVENT DATE: 20250506
